FAERS Safety Report 7238404-4 (Version None)
Quarter: 2011Q1

REPORT INFORMATION
  Report Type: 
  Country: None (occurrence: None)
  Receive Date: 20110121
  Receipt Date: 20110112
  Transmission Date: 20110831
  Serious: Yes (Hospitalization, Disabling)
  Sender: FDA-Public Use
  Company Number: US-MERCK-0910USA01555

PATIENT
  Age: 67 Year
  Sex: Female
  Weight: 55 kg

DRUGS (17)
  1. LOTENSIN HCT [Concomitant]
     Route: 048
  2. ZOCOR [Concomitant]
     Route: 048
  3. OMEGA-3 MARINE TRIGLYCERIDES [Concomitant]
     Route: 065
     Dates: start: 20000101
  4. FOSAMAX [Suspect]
     Indication: OSTEOPENIA
     Dosage: A.M
     Route: 048
     Dates: start: 20010101, end: 20090729
  5. CALCIUM (UNSPECIFIED) AND VITAMIN D (UNSPECIFIED) [Concomitant]
     Route: 048
     Dates: start: 19830101
  6. FOSAMAX [Suspect]
     Indication: OSTEOPOROSIS
     Dosage: A.M
     Route: 048
     Dates: start: 20010101, end: 20090729
  7. ELAVIL [Concomitant]
     Route: 048
  8. VITAMINS (UNSPECIFIED) [Concomitant]
     Route: 048
     Dates: start: 20000101
  9. DILAUDID [Concomitant]
     Route: 065
  10. FOSAMAX [Suspect]
     Dosage: A.M
     Route: 048
     Dates: end: 20061108
  11. NIACIN [Concomitant]
     Route: 048
     Dates: start: 20050101
  12. VAGIFEM [Concomitant]
     Route: 067
  13. PREMARIN [Concomitant]
     Dosage: 1.2 APPLICATOR VAGINALLY
     Route: 067
  14. LEVOTHYROXINE SODIUM [Concomitant]
     Route: 065
  15. FOSAMAX [Suspect]
     Dosage: A.M
     Route: 048
     Dates: end: 20061108
  16. ASPIRIN [Concomitant]
     Route: 065
     Dates: start: 20070101
  17. CYANOCOBALAMIN [Concomitant]
     Route: 065

REACTIONS (11)
  - ABDOMINAL DISCOMFORT [None]
  - PAIN IN EXTREMITY [None]
  - ARTHRALGIA [None]
  - DIARRHOEA [None]
  - ANXIETY [None]
  - INTERVERTEBRAL DISC PROTRUSION [None]
  - FALL [None]
  - RHINITIS ALLERGIC [None]
  - FRACTURE DELAYED UNION [None]
  - FEMUR FRACTURE [None]
  - NAUSEA [None]
